FAERS Safety Report 8883073 (Version 2)
Quarter: 2013Q2

REPORT INFORMATION
  Report Type: Report from Study
  Country: FR (occurrence: FR)
  Receive Date: 20121102
  Receipt Date: 20130520
  Transmission Date: 20140414
  Serious: Yes (Hospitalization)
  Sender: FDA-Public Use
  Company Number: PHHY2012FR098785

PATIENT
  Age: 83 Year
  Sex: Female
  Weight: 63 kg

DRUGS (13)
  1. ACLASTA/ZOLEDRONATE [Suspect]
     Indication: OSTEOPOROTIC FRACTURE
     Dosage: UNK
     Dates: start: 20110328
  2. LEVOTHYROX [Concomitant]
     Dosage: UNK
     Dates: start: 1985
  3. CORDARONE [Concomitant]
     Dosage: UNK
     Dates: start: 2003
  4. BRONCHODUAL [Concomitant]
     Dosage: UNK
     Dates: start: 2003
  5. SERETIDE [Concomitant]
     Dosage: UNK
     Dates: start: 2003
  6. PREVISCAN [Concomitant]
     Indication: CARDIAC FIBRILLATION
     Dosage: UNK
     Dates: start: 2009
  7. LASILIX [Concomitant]
     Dosage: UNK
     Dates: start: 2009
  8. OROCAL D3 [Concomitant]
     Dosage: UNK UKN, UNK
     Dates: start: 2010, end: 201104
  9. CARDENSIEL [Concomitant]
     Dosage: UNK UKN, UNK
     Dates: start: 2011
  10. DOLIPRANE [Concomitant]
     Dosage: UNK UKN, UNK
     Dates: start: 2011
  11. CACIT D3 [Concomitant]
     Indication: OSTEOPOROSIS
     Dosage: UNK
     Dates: start: 2011
  12. AZITHROMYCINE [Concomitant]
     Dosage: UNK
     Dates: start: 2011
  13. KALEORID [Concomitant]
     Dosage: UNK
     Dates: start: 2011

REACTIONS (3)
  - Cardiac disorder [Unknown]
  - Arrhythmia [Unknown]
  - Atrial fibrillation [Recovered/Resolved]
